FAERS Safety Report 14426241 (Version 1)
Quarter: 2018Q1

REPORT INFORMATION
  Report Type: Spontaneous
  Country: US (occurrence: US)
  Receive Date: 20180123
  Receipt Date: 20180123
  Transmission Date: 20180509
  Serious: No
  Sender: FDA-Public Use
  Company Number: US-VIIV HEALTHCARE LIMITED-US2018008614

PATIENT
  Age: 64 Year
  Sex: Male

DRUGS (6)
  1. TRIUMEQ [Suspect]
     Active Substance: ABACAVIR SULFATE\DOLUTEGRAVIR SODIUM\LAMIVUDINE
     Indication: HIV INFECTION
     Dosage: 600 MG, 1D
     Dates: start: 201711
  2. BILBERRY [Concomitant]
     Active Substance: BILBERRY
  3. CHICKWEED [Concomitant]
  4. DRAGON^S BLOOD [Concomitant]
  5. WHITE WILLOW BARK [Concomitant]
  6. ST. JOHN^S WORT [Concomitant]
     Active Substance: ST. JOHN^S WORT

REACTIONS (4)
  - Fatigue [Recovering/Resolving]
  - Drug dose omission [Recovering/Resolving]
  - Abdominal discomfort [Recovering/Resolving]
  - Pruritus [Unknown]

NARRATIVE: CASE EVENT DATE: 201711
